FAERS Safety Report 17603246 (Version 2)
Quarter: 2020Q2

REPORT INFORMATION
  Report Type: Report from Study
  Country: US (occurrence: US)
  Receive Date: 20200331
  Receipt Date: 20200402
  Transmission Date: 20200713
  Serious: Yes (Other)
  Sender: FDA-Public Use
  Company Number: US-GLAXOSMITHKLINE-US2020TSO002029

PATIENT
  Sex: Female
  Weight: 64.79 kg

DRUGS (2)
  1. NIRAPARIB [Suspect]
     Active Substance: NIRAPARIB
     Indication: MALIGNANT PERITONEAL NEOPLASM
     Dosage: 300 MG, QD
     Route: 048
  2. NIRAPARIB [Suspect]
     Active Substance: NIRAPARIB
     Dosage: 300 MG, QD
     Route: 048
     Dates: start: 20191224, end: 20200219

REACTIONS (5)
  - Myalgia [Unknown]
  - Recurrent cancer [Unknown]
  - Night sweats [Unknown]
  - Malignant neoplasm progression [Unknown]
  - Pain [Unknown]
